FAERS Safety Report 9886644 (Version 2)
Quarter: 2014Q3

REPORT INFORMATION
  Report Type: Spontaneous
  Country: US (occurrence: US)
  Receive Date: 20140210
  Receipt Date: 20140808
  Transmission Date: 20150326
  Serious: Yes (Hospitalization, Other)
  Sender: FDA-Public Use
  Company Number: US-009507513-1402USA004227

PATIENT
  Sex: Female

DRUGS (1)
  1. NUVARING [Suspect]
     Active Substance: ETHINYL ESTRADIOL\ETONOGESTREL
     Indication: PRODUCT USED FOR UNKNOWN INDICATION
     Dosage: PLACED EVERY 3 WEEKS WITH 1 WEEK OFF
     Route: 067
     Dates: end: 20130525

REACTIONS (11)
  - Upper respiratory tract infection [Unknown]
  - Accident [Unknown]
  - Pulmonary embolism [Unknown]
  - Migraine [Unknown]
  - Wound infection staphylococcal [Unknown]
  - Bronchitis [Unknown]
  - Musculoskeletal chest pain [Unknown]
  - Incisional drainage [Unknown]
  - Muscle strain [Unknown]
  - Sciatica [Unknown]
  - Peripheral swelling [Unknown]

NARRATIVE: CASE EVENT DATE: 2009
